FAERS Safety Report 6644163-6 (Version None)
Quarter: 2010Q1

REPORT INFORMATION
  Report Type: 
  Country: None (occurrence: None)
  Receive Date: 20100322
  Receipt Date: 20100317
  Transmission Date: 20100710
  Serious: Yes (Death, Hospitalization)
  Sender: FDA-Public Use
  Company Number: PHHY2010JP16166

PATIENT
  Age: 36 Year
  Sex: Female

DRUGS (4)
  1. VOLTAREN [Suspect]
     Route: 048
  2. LEVOFLOXACIN [Suspect]
     Route: 048
  3. TEPRENONE [Suspect]
  4. CARBOCISTEINE [Suspect]
     Route: 048

REACTIONS (11)
  - ACIDOSIS [None]
  - ACUTE RESPIRATORY DISTRESS SYNDROME [None]
  - CARDIO-RESPIRATORY ARREST [None]
  - CONVULSION [None]
  - DIARRHOEA [None]
  - HEPATITIS ACUTE [None]
  - HYPOXIA [None]
  - RENAL FAILURE ACUTE [None]
  - SHOCK [None]
  - TOXIC EPIDERMAL NECROLYSIS [None]
  - VOMITING [None]
